FAERS Safety Report 16131175 (Version 1)
Quarter: 2019Q1

REPORT INFORMATION
  Report Type: Other
  Country: None (occurrence: US)
  Receive Date: 20190328
  Receipt Date: 20190328
  Transmission Date: 20190418
  Serious: Yes (Hospitalization)
  Sender: FDA-Public Use
  Company Number: US-MEDAC PHARMA, INC.-2064876

PATIENT
  Age: 10 Year
  Sex: Male
  Weight: 31.4 kg

DRUGS (5)
  1. METHOTREXATE. [Suspect]
     Active Substance: METHOTREXATE
  2. ONCASPAR [Suspect]
     Active Substance: PEGASPARGASE
  3. VINCRISTINE SULFATE. [Suspect]
     Active Substance: VINCRISTINE SULFATE
  4. DAUNORUBICIN HYDROCHLORIDE. [Suspect]
     Active Substance: DAUNORUBICIN HYDROCHLORIDE
  5. CYTARABINE. [Suspect]
     Active Substance: CYTARABINE

REACTIONS (6)
  - Seizure [Unknown]
  - Coagulopathy [Unknown]
  - Cerebral ischaemia [Unknown]
  - Hypofibrinogenaemia [Unknown]
  - Neurologic neglect syndrome [Unknown]
  - Apnoea [Unknown]

NARRATIVE: CASE EVENT DATE: 20181116
